FAERS Safety Report 5767768-3 (Version None)
Quarter: 2008Q2

REPORT INFORMATION
  Report Type: 
  Country: None (occurrence: None)
  Receive Date: 20080612
  Receipt Date: 20080602
  Transmission Date: 20081010
  Serious: Yes (Hospitalization, Other)
  Sender: FDA-Public Use
  Company Number: US-PFIZER INC-2008047529

PATIENT
  Sex: Female
  Weight: 50 kg

DRUGS (4)
  1. CHANTIX [Suspect]
     Indication: SMOKING CESSATION THERAPY
     Dates: start: 20071012, end: 20071111
  2. LIPITOR [Interacting]
     Indication: BLOOD CHOLESTEROL INCREASED
  3. VITAMIN CAP [Concomitant]
  4. FOSAMAX [Concomitant]

REACTIONS (21)
  - ABNORMAL DREAMS [None]
  - APATHY [None]
  - BACK PAIN [None]
  - BEDRIDDEN [None]
  - BLOOD POTASSIUM DECREASED [None]
  - C-REACTIVE PROTEIN INCREASED [None]
  - CONSTIPATION [None]
  - DECREASED ACTIVITY [None]
  - DECREASED APPETITE [None]
  - DECREASED INTEREST [None]
  - DISSOCIATION [None]
  - DRUG INTERACTION [None]
  - HALLUCINATION [None]
  - HYPERSOMNIA [None]
  - INTESTINAL PERFORATION [None]
  - IRRITABILITY [None]
  - MULTI-ORGAN FAILURE [None]
  - NAUSEA [None]
  - RED BLOOD CELL SEDIMENTATION RATE INCREASED [None]
  - VOMITING [None]
  - WEIGHT DECREASED [None]
